FAERS Safety Report 9631053 (Version 1)
Quarter: 2013Q4

REPORT INFORMATION
  Report Type: Spontaneous
  Country: BR (occurrence: BR)
  Receive Date: 20131018
  Receipt Date: 20131018
  Transmission Date: 20140711
  Serious: Yes (Other)
  Sender: FDA-Public Use
  Company Number: BR-ASTRAZENECA-2013SE75928

PATIENT
  Sex: Female

DRUGS (4)
  1. BRILINTA [Suspect]
     Route: 048
     Dates: start: 201209
  2. CARVEDILOL [Concomitant]
     Indication: CARDIAC DISORDER
  3. ASA [Concomitant]
     Indication: ANTICOAGULANT THERAPY
  4. INSULIN [Concomitant]
     Indication: DIABETES MELLITUS

REACTIONS (3)
  - Fall [Unknown]
  - Dyspnoea [Unknown]
  - Haemorrhage [Unknown]
